FAERS Safety Report 14102376 (Version 1)
Quarter: 2017Q4

REPORT INFORMATION
  Report Type: Spontaneous
  Country: US (occurrence: None)
  Receive Date: 20171018
  Receipt Date: 20171018
  Transmission Date: 20180321
  Serious: Yes (Hospitalization)
  Sender: FDA-Public Use
  Company Number: None

PATIENT
  Age: 66 Year
  Sex: Male
  Weight: 87 kg

DRUGS (3)
  1. 5-FLUOROURACIL (5-FU) [Suspect]
     Active Substance: FLUOROURACIL
     Dates: end: 20170705
  2. ELOXATIN [Suspect]
     Active Substance: OXALIPLATIN
     Dates: end: 20170705
  3. LEUCOVORIN CALCIUM. [Suspect]
     Active Substance: LEUCOVORIN CALCIUM
     Dates: end: 20170705

REACTIONS (10)
  - Memory impairment [None]
  - Stoma site reaction [None]
  - Gastrointestinal stoma complication [None]
  - Stoma site extravasation [None]
  - Stoma site erythema [None]
  - Fall [None]
  - Skin disorder [None]
  - Cognitive disorder [None]
  - Gastrointestinal stoma output increased [None]
  - Central nervous system haemorrhage [None]

NARRATIVE: CASE EVENT DATE: 20170712
